FAERS Safety Report 23615448 (Version 1)
Quarter: 2024Q1

REPORT INFORMATION
  Report Type: Spontaneous
  Country: US (occurrence: US)
  Receive Date: 20240311
  Receipt Date: 20240311
  Transmission Date: 20240410
  Serious: Yes (Death, Other)
  Sender: FDA-Public Use
  Company Number: US-AUROBINDO-AUR-APL-2009-00904

PATIENT
  Age: 25 Year
  Sex: Male

DRUGS (8)
  1. BUSPIRONE HYDROCHLORIDE [Suspect]
     Active Substance: BUSPIRONE HYDROCHLORIDE
     Indication: Product used for unknown indication
     Dosage: UNK UNK,UNK,,UNKNOWN
     Route: 065
  2. SERTRALINE HYDROCHLORIDE [Suspect]
     Active Substance: SERTRALINE HYDROCHLORIDE
     Indication: Anxiety disorder
     Dosage: UNK UNK,UNK,,UNKNOWN
     Route: 065
  3. METHADONE [Suspect]
     Active Substance: METHADONE HYDROCHLORIDE
     Indication: Product used for unknown indication
     Dosage: UNK UNK,UNK,,UNKNOWN
     Route: 065
  4. HERBALS\TETRAHYDROCANNABINOL UNSPECIFIED [Suspect]
     Active Substance: HERBALS\TETRAHYDROCANNABINOL UNSPECIFIED
     Indication: Product used for unknown indication
     Dosage: UNK UNK,UNK,,UNKNOWN
     Route: 065
  5. NICOTINE [Suspect]
     Active Substance: NICOTINE
     Indication: Product used for unknown indication
     Dosage: UNK UNK,UNK,,UNKNOWN
     Route: 065
  6. LORAZEPAM [Suspect]
     Active Substance: LORAZEPAM
     Indication: Product used for unknown indication
     Dosage: UNK UNK,UNK,,UNKNOWN
     Route: 065
  7. GUAIFENESIN [Suspect]
     Active Substance: GUAIFENESIN
     Indication: Product used for unknown indication
     Dosage: UNK UNK,UNK,,UNKNOWN
     Route: 065
  8. MELATONIN [Suspect]
     Active Substance: MELATONIN
     Indication: Product used for unknown indication
     Dosage: UNK UNK,UNK,,UNKNOWN
     Route: 065

REACTIONS (7)
  - Overdose [Fatal]
  - Drug interaction [Fatal]
  - Brain oedema [Fatal]
  - Pulmonary oedema [Fatal]
  - Drug abuse [Fatal]
  - Substance abuse [Fatal]
  - Cardiomegaly [Fatal]
